FAERS Safety Report 19641988 (Version 1)
Quarter: 2021Q3

REPORT INFORMATION
  Report Type: Spontaneous
  Country: FR (occurrence: FR)
  Receive Date: 20210731
  Receipt Date: 20210731
  Transmission Date: 20211014
  Serious: Yes (Life-Threatening, Hospitalization)
  Sender: FDA-Public Use
  Company Number: FR-ACCORD-233799

PATIENT
  Age: 33 Year
  Sex: Male

DRUGS (4)
  1. CLONAZEPAM. [Suspect]
     Active Substance: CLONAZEPAM
     Dosage: 80 MG, QD (MAXIMAL INGESTION: 80MG)
     Route: 048
  2. HYDROXYZINE [Interacting]
     Active Substance: HYDROXYZINE HYDROCHLORIDE
     Dosage: 6 G, QD (MAXIMAL INGESTION: 6G)
     Route: 048
  3. GABAPENTIN. [Interacting]
     Active Substance: GABAPENTIN
     Dosage: 1 G, QD (MAXIMAL INGESTION: 1G)
     Route: 048
  4. TRAMADOL. [Interacting]
     Active Substance: TRAMADOL
     Dosage: 10 G, QD (MAXIMAL INGESTION: 10G)
     Route: 048

REACTIONS (20)
  - Hypothermia [Recovering/Resolving]
  - Intentional overdose [Unknown]
  - Drug interaction [Unknown]
  - Hypotension [Recovered/Resolved]
  - Ventricular tachycardia [Recovered/Resolved]
  - Loss of consciousness [Recovering/Resolving]
  - Bundle branch block right [Recovering/Resolving]
  - Shock [Recovered/Resolved]
  - Pupillary reflex impaired [Recovered/Resolved]
  - Serotonin syndrome [Recovering/Resolving]
  - Cerebral disorder [Unknown]
  - Acute kidney injury [Recovered/Resolved]
  - Coma [Recovered/Resolved]
  - Mydriasis [Recovered/Resolved]
  - Depressed level of consciousness [Recovered/Resolved with Sequelae]
  - Cardiac arrest [Recovered/Resolved]
  - Seizure [Recovered/Resolved]
  - Hypoglycaemia [Recovered/Resolved]
  - Electrocardiogram QT prolonged [Recovering/Resolving]
  - Lung disorder [Recovered/Resolved]
